FAERS Safety Report 5211906-8 (Version None)
Quarter: 2007Q1

REPORT INFORMATION
  Report Type: 
  Country: None (occurrence: None)
  Receive Date: 20070116
  Receipt Date: 20070116
  Transmission Date: 20070707
  Serious: Yes (Life-Threatening, Hospitalization, Disabling)
  Sender: FDA-Public Use
  Company Number: None

PATIENT
  Age: 12 Year
  Sex: Female

DRUGS (1)
  1. RITUXAN [Suspect]

REACTIONS (7)
  - DIARRHOEA [None]
  - GASTROINTESTINAL DISORDER [None]
  - GUILLAIN-BARRE SYNDROME [None]
  - INFUSION RELATED REACTION [None]
  - PARALYSIS [None]
  - RESPIRATORY DISORDER [None]
  - VOMITING [None]
